FAERS Safety Report 18277765 (Version 1)
Quarter: 2020Q3

REPORT INFORMATION
  Report Type: Spontaneous
  Country: FR (occurrence: FR)
  Receive Date: 20200917
  Receipt Date: 20200917
  Transmission Date: 20201103
  Serious: Yes (Other)
  Sender: FDA-Public Use
  Company Number: FR-GLAXOSMITHKLINE-FR2019083619

PATIENT
  Age: 44 Year
  Sex: Female

DRUGS (8)
  1. ALPRAZOLAM. [Suspect]
     Active Substance: ALPRAZOLAM
     Indication: MIXED ANXIETY AND DEPRESSIVE DISORDER
     Dosage: 1.5 DF, QD, (TABLET OF 0.25 MG OR 0.75 MG PER DAY)
     Route: 048
     Dates: start: 20190213
  2. PRIMPERAN [Suspect]
     Active Substance: METOCLOPRAMIDE HYDROCHLORIDE
     Indication: NAUSEA
     Dosage: UNK, (SELF?MEDICATION DURING NAUSEA)
     Route: 048
     Dates: end: 20190330
  3. RANITIDINE. [Suspect]
     Active Substance: RANITIDINE
     Indication: PRODUCT USED FOR UNKNOWN INDICATION
     Dosage: 300 MG, QD, (1/2 TAB OF 300 MG X 2 PER DAY)
     Route: 048
     Dates: start: 20190117
  4. CORTANCYL [Concomitant]
     Active Substance: PREDNISONE
     Indication: SPONDYLITIS
     Dosage: 7 MG, QD
     Route: 048
     Dates: start: 20190213
  5. NASONEX [Concomitant]
     Active Substance: MOMETASONE FUROATE
     Indication: PRODUCT USED FOR UNKNOWN INDICATION
     Dosage: UNK, (1 SPRAY TWICE A DAY)
     Route: 045
  6. LOXEN LP [Concomitant]
     Active Substance: NICARDIPINE HYDROCHLORIDE
     Indication: HYPERTENSION
     Dosage: 2 DF, QD
     Route: 048
     Dates: start: 20190213
  7. DOLIPRANE [Concomitant]
     Active Substance: ACETAMINOPHEN
     Indication: SPONDYLITIS
     Dosage: 3 G, QD
     Route: 048
     Dates: start: 20190213
  8. CIMZIA [Concomitant]
     Active Substance: CERTOLIZUMAB PEGOL
     Indication: SPONDYLITIS
     Dosage: 200 MG, QOD
     Route: 058
     Dates: start: 20190322

REACTIONS (1)
  - Hyperprolactinaemia [Not Recovered/Not Resolved]

NARRATIVE: CASE EVENT DATE: 20190330
